FAERS Safety Report 5955807-6 (Version None)
Quarter: 2008Q4

REPORT INFORMATION
  Report Type: 
  Country: None (occurrence: None)
  Receive Date: 20081117
  Receipt Date: 20081105
  Transmission Date: 20090506
  Serious: Yes (Hospitalization)
  Sender: FDA-Public Use
  Company Number: US-PFIZER INC-2008092961

PATIENT
  Age: 41 Year
  Sex: Male
  Weight: 55.4 kg

DRUGS (3)
  1. SUTENT [Suspect]
     Indication: THYROID CANCER
     Route: 048
     Dates: start: 20080131, end: 20080509
  2. DIFLUCAN [Concomitant]
  3. FLEXERIL [Concomitant]

REACTIONS (7)
  - DEHYDRATION [None]
  - MYELITIS [None]
  - NEUROPATHY PERIPHERAL [None]
  - OESOPHAGEAL PERFORATION [None]
  - ORAL PAIN [None]
  - OSTEOMYELITIS [None]
  - PHARYNGITIS [None]
